FAERS Safety Report 7968377-8 (Version None)
Quarter: 2011Q4

REPORT INFORMATION
  Report Type: 
  Country: None (occurrence: None)
  Receive Date: 20111207
  Receipt Date: 20111125
  Transmission Date: 20120403
  Serious: Yes (Life-Threatening, Hospitalization, Other)
  Sender: FDA-Public Use
  Company Number: 2011MA017126

PATIENT
  Age: 80 Year
  Sex: Female

DRUGS (9)
  1. TEMAZEPAM [Concomitant]
  2. PRAVASTATIN [Concomitant]
  3. ACETAMINOPHEN AND CODEINE PHOSPHATE [Concomitant]
  4. OMEPRAZOLE [Concomitant]
  5. TAFLUPROST [Concomitant]
  6. CITALOPRAM HYDROBROMIDE [Suspect]
     Indication: DEPRESSION
     Dosage: 40 MG;PO
     Route: 048
     Dates: start: 20000101, end: 20111108
  7. CARBOMER 980 [Concomitant]
  8. ESCITALOPRAM [Concomitant]
  9. ATENOLOL [Concomitant]

REACTIONS (4)
  - HAEMATEMESIS [None]
  - GASTRIC ULCER [None]
  - DIZZINESS [None]
  - GASTROINTESTINAL HAEMORRHAGE [None]
